FAERS Safety Report 9399365 (Version 1)
Quarter: 2013Q3

REPORT INFORMATION
  Report Type: Spontaneous
  Country: US (occurrence: None)
  Receive Date: 20130709
  Receipt Date: 20130709
  Transmission Date: 20140515
  Serious: Yes (Other)
  Sender: FDA-Public Use
  Company Number: 2013SA054624

PATIENT
  Age: 38 Year
  Sex: Male
  Weight: 99.79 kg

DRUGS (1)
  1. CAPZASIN [Suspect]
     Indication: MUSCULOSKELETAL STIFFNESS
     Dosage: ONCE, UNKNOWN
     Dates: start: 20130527, end: 20130527

REACTIONS (2)
  - Application site hypersensitivity [None]
  - Application site burn [None]
